FAERS Safety Report 13273313 (Version 2)
Quarter: 2017Q1

REPORT INFORMATION
  Report Type: Report from Study
  Country: US (occurrence: US)
  Receive Date: 20170227
  Receipt Date: 20170327
  Transmission Date: 20170428
  Serious: Yes (Death, Hospitalization, Other)
  Sender: FDA-Public Use
  Company Number: US-ACADIA PHARMACEUTICALS INC.-ACA-2017-002338

PATIENT
  Age: 83 Year
  Sex: Male

DRUGS (2)
  1. NUPLAZID [Suspect]
     Active Substance: PIMAVANSERIN TARTRATE
     Indication: DEMENTIA WITH LEWY BODIES
     Dosage: 17 MG, BID
     Route: 048
     Dates: start: 20161130, end: 20170208
  2. EXELON [Concomitant]
     Active Substance: RIVASTIGMINE TARTRATE
     Indication: PRODUCT USED FOR UNKNOWN INDICATION

REACTIONS (11)
  - Cholecystitis infective [Unknown]
  - Anaemia [Unknown]
  - Prostate cancer [Unknown]
  - Cholangitis [Fatal]
  - Prostatic specific antigen increased [Unknown]
  - Off label use [Unknown]
  - Starvation [Fatal]
  - Hepatic failure [Fatal]
  - General physical health deterioration [Not Recovered/Not Resolved]
  - Orthostatic hypotension [Unknown]
  - Prostatomegaly [Unknown]

NARRATIVE: CASE EVENT DATE: 201702
